FAERS Safety Report 8244867-8 (Version None)
Quarter: 2012Q1

REPORT INFORMATION
  Report Type: 
  Country: None (occurrence: None)
  Receive Date: 20120329
  Receipt Date: 20110713
  Transmission Date: 20120608
  Serious: No
  Sender: FDA-Public Use
  Company Number: US-MYLANLABS-2011S1014552

PATIENT
  Sex: Female

DRUGS (2)
  1. COMPAZINE [Concomitant]
  2. FENTANYL-100 [Suspect]
     Indication: NEURALGIA
     Dosage: Q48H
     Route: 062
     Dates: start: 20040101

REACTIONS (5)
  - DRUG EFFECT INCREASED [None]
  - APPLICATION SITE PAIN [None]
  - APPLICATION SITE RASH [None]
  - EUPHORIC MOOD [None]
  - APPLICATION SITE ERYTHEMA [None]
